FAERS Safety Report 7712874-7 (Version None)
Quarter: 2011Q3

REPORT INFORMATION
  Report Type: 
  Country: None (occurrence: None)
  Receive Date: 20110826
  Receipt Date: 20110822
  Transmission Date: 20111222
  Serious: Yes (Death, Hospitalization)
  Sender: FDA-Public Use
  Company Number: PHHY2011MX75091

PATIENT
  Sex: Female

DRUGS (2)
  1. DIOVAN [Suspect]
     Indication: HYPERTENSION
     Dosage: 80 MG, DAILY (1 TABLET)
     Route: 048
     Dates: start: 20110601
  2. DIOVAN HCT [Suspect]
     Indication: HYPERTENSION
     Dosage: 80 MG VALS AND 12.5 HYDRO, 1 TABLET DAILY
     Route: 048
     Dates: start: 19970118, end: 20110601

REACTIONS (9)
  - HEADACHE [None]
  - HYPERHIDROSIS [None]
  - BLOOD PRESSURE INCREASED [None]
  - CHEST PAIN [None]
  - ARTERIAL DISORDER [None]
  - WEIGHT DECREASED [None]
  - CARDIOVASCULAR DISORDER [None]
  - HYPOTHYROIDISM [None]
  - MYOCARDIAL INFARCTION [None]
